FAERS Safety Report 5215334-0 (Version None)
Quarter: 2007Q1

REPORT INFORMATION
  Report Type: 
  Country: None (occurrence: None)
  Receive Date: 20070116
  Receipt Date: 20070111
  Transmission Date: 20070707
  Serious: Yes (Death)
  Sender: FDA-Public Use
  Company Number: 2007-00071

PATIENT
  Age: 71 Year
  Sex: Female

DRUGS (6)
  1. VELCADE [Suspect]
     Indication: MULTIPLE MYELOMA
     Dosage: SEE IMAGE
     Dates: start: 20061218, end: 20061225
  2. VELCADE [Suspect]
     Indication: MULTIPLE MYELOMA
     Dosage: SEE IMAGE
     Dates: start: 20061228, end: 20061228
  3. DECADRON [Concomitant]
  4. SAURAMIDE [Concomitant]
  5. FAMOTIDINE [Concomitant]
  6. SULFAMETHOXAZOLE + TRIMETHOPRIM [Concomitant]

REACTIONS (1)
  - INTERSTITIAL LUNG DISEASE [None]
